FAERS Safety Report 5161016-3 (Version None)
Quarter: 2006Q4

REPORT INFORMATION
  Report Type: 
  Country: None (occurrence: None)
  Receive Date: 20061130
  Receipt Date: 20061122
  Transmission Date: 20070319
  Serious: Yes (Death, Hospitalization)
  Sender: FDA-Public Use
  Company Number: US-JNJFOC-20060905775

PATIENT
  Sex: Male
  Weight: 91.17 kg

DRUGS (13)
  1. LEVAQUIN [Suspect]
     Indication: BRONCHITIS
     Route: 048
     Dates: start: 20060420, end: 20060420
  2. LEVAQUIN [Suspect]
     Indication: SINUSITIS
     Route: 048
     Dates: start: 20060420, end: 20060420
  3. LANTIS [Concomitant]
     Indication: DIABETES MELLITUS
     Route: 065
  4. ACTOS [Concomitant]
     Indication: DIABETES MELLITUS
     Route: 065
  5. TRICLOR [Concomitant]
     Indication: HYPERCHOLESTEROLAEMIA
     Route: 065
  6. LIPITOR [Concomitant]
     Indication: HYPERCHOLESTEROLAEMIA
     Route: 065
  7. GLUCOTRAL [Concomitant]
     Indication: DIABETES MELLITUS
     Route: 065
  8. METFORMIN [Concomitant]
     Indication: DIABETES MELLITUS
     Route: 065
  9. LISINOPRIL [Concomitant]
     Indication: BLOOD PRESSURE
     Route: 065
  10. AUGMENTIN '125' [Concomitant]
     Indication: SINUSITIS
     Route: 065
     Dates: start: 20060407, end: 20060417
  11. FLONASE [Concomitant]
     Indication: SINUSITIS
     Route: 065
  12. MAXZIDE [Concomitant]
     Route: 048
  13. MAXZIDE [Concomitant]
     Route: 048

REACTIONS (1)
  - ANAPHYLACTIC REACTION [None]
